FAERS Safety Report 9320350 (Version 2)
Quarter: 2013Q2

REPORT INFORMATION
  Report Type: Spontaneous
  Country: GB (occurrence: GB)
  Receive Date: 20130530
  Receipt Date: 20130607
  Transmission Date: 20140414
  Serious: Yes (Other)
  Sender: FDA-Public Use
  Company Number: GB-B.I. PHARMACEUTICALS,INC./RIDGEFIELD-2013-UK-01141UK

PATIENT
  Age: 66 Year
  Sex: Male

DRUGS (13)
  1. FLOMAX RELIEF MR [Suspect]
     Indication: BENIGN PROSTATIC HYPERPLASIA
  2. CAPRA [Concomitant]
  3. LEVETIRACETAM [Concomitant]
  4. CAVIDARELL [Concomitant]
  5. MONTELUKAST [Concomitant]
  6. FUROSEMIDE [Concomitant]
  7. ATORVASTATIN [Concomitant]
  8. LANSOPRAZOLE [Concomitant]
  9. DISOLIPINE [Concomitant]
  10. WARFARIN [Concomitant]
  11. PLANTAGO [Concomitant]
  12. SENNA [Concomitant]
  13. DIGOXIN [Concomitant]

REACTIONS (1)
  - Electrocardiogram QT prolonged [Unknown]
